FAERS Safety Report 25219600 (Version 2)
Quarter: 2025Q2

REPORT INFORMATION
  Report Type: Spontaneous
  Country: US (occurrence: US)
  Receive Date: 20250421
  Receipt Date: 20250609
  Transmission Date: 20250717
  Serious: Yes (Other)
  Sender: NOVARTIS
  Company Number: US-002147023-NVSC2025US064665

PATIENT
  Age: 59 Year
  Sex: Female

DRUGS (1)
  1. ELTROMBOPAG [Suspect]
     Active Substance: ELTROMBOPAG
     Indication: Thrombocytopenia
     Dosage: 50 MG, QD
     Route: 048
     Dates: start: 20200603, end: 20220922

REACTIONS (5)
  - Autoimmune hepatitis [Recovering/Resolving]
  - Liver function test increased [Recovering/Resolving]
  - Hepatic fibrosis [Unknown]
  - Hepatitis [Unknown]
  - Lymphocytic infiltration [Unknown]
